FAERS Safety Report 19416016 (Version 1)
Quarter: 2021Q2

REPORT INFORMATION
  Report Type: Spontaneous
  Country: GB (occurrence: GB)
  Receive Date: 20210615
  Receipt Date: 20210615
  Transmission Date: 20210717
  Serious: Yes (Other)
  Sender: FDA-Public Use
  Company Number: GB-MACLEODS PHARMACEUTICALS US LTD-MAC2021031491

PATIENT

DRUGS (1)
  1. ACYCLOVIR. [Suspect]
     Active Substance: ACYCLOVIR
     Indication: HERPES ZOSTER CUTANEOUS DISSEMINATED
     Dosage: 7.8 MILLIGRAM/KILOGRAM, QD
     Route: 042

REACTIONS (4)
  - Hallucination, visual [Recovered/Resolved]
  - Thought insertion [Recovered/Resolved]
  - Hyperacusis [Recovered/Resolved]
  - Hyperaesthesia [Recovered/Resolved]
